FAERS Safety Report 16324408 (Version 1)
Quarter: 2019Q2

REPORT INFORMATION
  Report Type: Spontaneous
  Country: CN (occurrence: CN)
  Receive Date: 20190517
  Receipt Date: 20190517
  Transmission Date: 20190711
  Serious: Yes (Other)
  Sender: FDA-Public Use
  Company Number: CN-ROCHE-2319440

PATIENT
  Age: 64 Year
  Sex: Female

DRUGS (22)
  1. CAPECITABINE. [Suspect]
     Active Substance: CAPECITABINE
     Indication: COLON CANCER
     Route: 048
     Dates: start: 20160926, end: 20170124
  2. OTERACIL POTASSIUM [Concomitant]
     Active Substance: OTERACIL POTASSIUM
     Indication: COLON CANCER
     Route: 065
     Dates: start: 20180521, end: 20180911
  3. OTERACIL POTASSIUM [Concomitant]
     Active Substance: OTERACIL POTASSIUM
     Indication: ADENOCARCINOMA
     Route: 065
     Dates: start: 20180911, end: 20181217
  4. CAPECITABINE. [Suspect]
     Active Substance: CAPECITABINE
     Indication: ADENOCARCINOMA
  5. OXALIPLATIN. [Concomitant]
     Active Substance: OXALIPLATIN
     Indication: ADENOCARCINOMA
     Route: 065
     Dates: start: 20160926, end: 20170124
  6. IRINOTECAN [Concomitant]
     Active Substance: IRINOTECAN
     Indication: ADENOCARCINOMA
  7. GEMCITABINE [Concomitant]
     Active Substance: GEMCITABINE\GEMCITABINE HYDROCHLORIDE
     Indication: ADENOCARCINOMA
  8. TEGAFUR [Concomitant]
     Active Substance: TEGAFUR
     Indication: ADENOCARCINOMA
     Route: 065
     Dates: start: 20180911, end: 20181217
  9. 5-FLUOROURACIL [FLUOROURACIL] [Concomitant]
     Active Substance: FLUOROURACIL
     Indication: ADENOCARCINOMA
  10. CALCIUM FOLINATE [Concomitant]
     Active Substance: LEUCOVORIN CALCIUM
     Indication: COLON CANCER
     Route: 065
     Dates: start: 20140710, end: 20150112
  11. IRINOTECAN [Concomitant]
     Active Substance: IRINOTECAN
     Indication: COLON CANCER
     Route: 065
     Dates: start: 20171023, end: 20180201
  12. RALTITREXED [Concomitant]
     Active Substance: RALTITREXED
     Indication: ADENOCARCINOMA
  13. RALTITREXED [Concomitant]
     Active Substance: RALTITREXED
     Indication: COLON CANCER
     Route: 065
     Dates: start: 20180305, end: 20180715
  14. GEMCITABINE [Concomitant]
     Active Substance: GEMCITABINE\GEMCITABINE HYDROCHLORIDE
     Indication: COLON CANCER
     Route: 065
     Dates: start: 20180521, end: 20180911
  15. GIMERACIL [Concomitant]
     Active Substance: GIMERACIL
     Indication: ADENOCARCINOMA
     Route: 065
     Dates: start: 20180911, end: 20181217
  16. OXALIPLATIN. [Concomitant]
     Active Substance: OXALIPLATIN
     Indication: COLON CANCER
     Route: 065
     Dates: start: 20140710, end: 20150112
  17. FRUQUINTINIB. [Concomitant]
     Active Substance: FRUQUINTINIB
     Indication: COLON CANCER
     Route: 065
     Dates: start: 20190115, end: 2019
  18. FRUQUINTINIB. [Concomitant]
     Active Substance: FRUQUINTINIB
     Indication: ADENOCARCINOMA
  19. 5-FLUOROURACIL [FLUOROURACIL] [Concomitant]
     Active Substance: FLUOROURACIL
     Indication: COLON CANCER
     Route: 065
     Dates: start: 20140710, end: 20150112
  20. CALCIUM FOLINATE [Concomitant]
     Active Substance: LEUCOVORIN CALCIUM
     Indication: ADENOCARCINOMA
  21. TEGAFUR [Concomitant]
     Active Substance: TEGAFUR
     Indication: COLON CANCER
     Route: 065
     Dates: start: 20180521, end: 20180911
  22. GIMERACIL [Concomitant]
     Active Substance: GIMERACIL
     Indication: COLON CANCER
     Route: 065
     Dates: start: 20180521, end: 20180911

REACTIONS (4)
  - Pyrexia [Unknown]
  - Proteinuria [Unknown]
  - Rash [Unknown]
  - Hypertension [Unknown]

NARRATIVE: CASE EVENT DATE: 2018
